FAERS Safety Report 7391828-7 (Version None)
Quarter: 2011Q2

REPORT INFORMATION
  Report Type: 
  Country: None (occurrence: None)
  Receive Date: 20110404
  Receipt Date: 20110329
  Transmission Date: 20111010
  Serious: Yes (Hospitalization)
  Sender: FDA-Public Use
  Company Number: DE-PFIZER INC-2009255004

PATIENT
  Age: 77 Year
  Sex: Female

DRUGS (14)
  1. EZETIMIBE/SIMVASTATIN [Concomitant]
     Dosage: 1 TABLET PER DAY
  2. SOTAHEXAL [Concomitant]
     Dosage: 40 MG, 3X/DAY
     Dates: start: 20040101, end: 20090802
  3. NOVODIGAL [Concomitant]
     Dosage: 0.2 MG
     Dates: start: 20040101, end: 20090802
  4. FUROSEMID [Concomitant]
     Dosage: 20 MG, 2X/DAY
     Dates: start: 20090301
  5. NOVODIGAL [Concomitant]
     Dosage: 0.2 MG, 1X/DAY
     Dates: start: 20090802
  6. TRIAMTERENE AND HYDROCHLOROTHIAZIDE [Concomitant]
     Dosage: 0.5 TABLETS PER DAY
     Dates: end: 20090802
  7. OLMESARTAN MEDOXOMIL [Concomitant]
     Dosage: 20 MG, 1X/DAY
     Dates: start: 20090301, end: 20090802
  8. CARMEN [Concomitant]
     Dosage: 10 MG, 2X/DAY
     Dates: end: 20090802
  9. NITROLINGUAL [Concomitant]
     Dosage: AS NEEDED
     Dates: start: 20030101
  10. KALINOR [Concomitant]
     Dosage: 3 G/D
     Dates: start: 20090728
  11. SUNITINIB MALATE [Suspect]
     Indication: METASTATIC RENAL CELL CARCINOMA
     Dosage: 50 MG, 4 WEEKS ON, 2 WEEKS OFF
     Route: 048
     Dates: start: 20090722, end: 20090802
  12. ALLOPURINOL [Concomitant]
     Dosage: 1/2 OF 300MG/1XDAILY, 150 MG DAILY
     Dates: end: 20090802
  13. FUROSEMID [Concomitant]
     Dosage: 80MG DAILY
     Dates: start: 20090730, end: 20090802
  14. MARCUMAR [Concomitant]
     Dosage: AS NEEDED
     Dates: start: 20030101, end: 20090802

REACTIONS (3)
  - HYPERTENSION [None]
  - DEHYDRATION [None]
  - SICK SINUS SYNDROME [None]
